FAERS Safety Report 7156275-1 (Version None)
Quarter: 2010Q4

REPORT INFORMATION
  Report Type: 
  Country: None (occurrence: None)
  Receive Date: 20101214
  Receipt Date: 20101208
  Transmission Date: 20110411
  Serious: Yes (Life-Threatening, Other)
  Sender: FDA-Public Use
  Company Number: JP-PFIZER INC-2010166575

PATIENT
  Age: 22 Year
  Sex: Female

DRUGS (3)
  1. EPIRUBICIN HYDROCHLORIDE [Suspect]
     Indication: PANCREATIC NEUROENDOCRINE TUMOUR
     Dosage: 30 MG/M2, DAYS 1-3
     Dates: start: 20090801
  2. FLUOROURACIL [Suspect]
     Indication: PANCREATIC NEUROENDOCRINE TUMOUR
     Dosage: 500 MG/M2, UNK
     Dates: start: 20090801
  3. DACARBAZINE [Suspect]
     Indication: PANCREATIC NEUROENDOCRINE TUMOUR
     Dosage: 200 MG/M2, UNK
     Dates: start: 20090801

REACTIONS (2)
  - NEUTROPHIL COUNT DECREASED [None]
  - PYREXIA [None]
